FAERS Safety Report 19067424 (Version 1)
Quarter: 2021Q1

REPORT INFORMATION
  Report Type: Report from Study
  Country: DE (occurrence: DE)
  Receive Date: 20210329
  Receipt Date: 20210329
  Transmission Date: 20210420
  Serious: Yes (Death, Hospitalization, Other)
  Sender: FDA-Public Use
  Company Number: DE-AUROBINDO-AUR-APL-2021-012881

PATIENT
  Sex: Male

DRUGS (6)
  1. CYCLOPHOSPHAMIDE. [Suspect]
     Active Substance: CYCLOPHOSPHAMIDE
     Indication: B-CELL LYMPHOMA
     Dosage: 1500 MILLIGRAM, 1+DAILY
     Route: 042
     Dates: start: 20140731, end: 20140731
  2. DOXORUBICIN [Suspect]
     Active Substance: DOXORUBICIN
     Indication: B-CELL LYMPHOMA
     Dosage: 100 MILLIGRAM, 1+ DAILY
     Route: 042
     Dates: start: 20140731, end: 20140731
  3. FILGRASTIM [Suspect]
     Active Substance: FILGRASTIM
     Indication: B-CELL LYMPHOMA
     Dosage: 480 MILLIGRAM 1+DAILY
     Route: 058
     Dates: start: 20140803, end: 20140803
  4. PREDNISOLONE. [Suspect]
     Active Substance: PREDNISOLONE
     Indication: B-CELL LYMPHOMA
     Dosage: 100 MILLIGRAM 1+ DAILY
     Route: 048
     Dates: start: 20140731, end: 20140804
  5. MABTHERA [Suspect]
     Active Substance: RITUXIMAB
     Indication: B-CELL LYMPHOMA
     Dosage: 750 MILLIGRAM, 1+ DAILY
     Route: 042
     Dates: start: 20140827, end: 20140827
  6. VINCRISTINE SULFATE LIPOSOME INJECTION [Suspect]
     Active Substance: VINCRISTINE SULFATE
     Indication: B-CELL LYMPHOMA
     Dosage: 2.05 MILLIGRAM, 1+DAILY
     Route: 042
     Dates: start: 20140805, end: 20140805

REACTIONS (5)
  - Dehydration [Fatal]
  - Hyperthyroidism [Not Recovered/Not Resolved]
  - General physical health deterioration [Fatal]
  - Bronchitis [Fatal]
  - Cardiac failure [Fatal]

NARRATIVE: CASE EVENT DATE: 20141221
